FAERS Safety Report 6449478-2 (Version None)
Quarter: 2009Q4

REPORT INFORMATION
  Report Type: 
  Country: None (occurrence: None)
  Receive Date: 20091120
  Receipt Date: 20091111
  Transmission Date: 20100525
  Serious: Yes (Hospitalization)
  Sender: FDA-Public Use
  Company Number: JP-ABBOTT-09P-087-0591145-00

PATIENT
  Sex: Female

DRUGS (2)
  1. LEUPROLIDE ACETATE [Suspect]
     Indication: BREAST CANCER
     Route: 058
     Dates: start: 20070829
  2. NOLVADEX [Concomitant]
     Indication: BREAST CANCER
     Route: 048
     Dates: start: 20070829

REACTIONS (1)
  - VARICOSE VEIN [None]
